FAERS Safety Report 24181026 (Version 1)
Quarter: 2024Q3

REPORT INFORMATION
  Report Type: Spontaneous
  Country: JP (occurrence: JP)
  Receive Date: 20240806
  Receipt Date: 20240806
  Transmission Date: 20241016
  Serious: Yes (Other)
  Sender: BRISTOL MYERS SQUIBB
  Company Number: JP-BRISTOL-MYERS SQUIBB COMPANY-2023-151378

PATIENT
  Age: 62 Year
  Sex: Male

DRUGS (7)
  1. YERVOY [Suspect]
     Active Substance: IPILIMUMAB
     Indication: Metastatic renal cell carcinoma
     Dosage: FROM 25-JUN-X YEAR TO 27-AUG-X YEAR, 4COURSES ADMINISTERED
     Route: 041
  2. OPDIVO [Suspect]
     Active Substance: NIVOLUMAB
     Indication: Metastatic renal cell carcinoma
     Dosage: FROM 25-JUN-X YEAR TO 27-AUG-X YEAR, 4COURSES ADMINISTERED
  3. OPDIVO [Suspect]
     Active Substance: NIVOLUMAB
     Dosage: 24-SEP-X YEAR, 240MG ADMINISTERED
  4. PAZOPANIB [Concomitant]
     Active Substance: PAZOPANIB
     Indication: Product used for unknown indication
  5. AXITINIB [Concomitant]
     Active Substance: AXITINIB
     Indication: Product used for unknown indication
  6. CABOZANTINIB [Concomitant]
     Active Substance: CABOZANTINIB
     Indication: Product used for unknown indication
  7. CABOZANTINIB [Concomitant]
     Active Substance: CABOZANTINIB

REACTIONS (6)
  - Interstitial lung disease [Unknown]
  - Metastatic renal cell carcinoma [Unknown]
  - Oedema [Unknown]
  - Palmar-plantar erythrodysaesthesia syndrome [Unknown]
  - Tumour embolism [Unknown]
  - Necrosis [Unknown]
